FAERS Safety Report 7996757-3 (Version None)
Quarter: 2011Q4

REPORT INFORMATION
  Report Type: 
  Country: None (occurrence: None)
  Receive Date: 20111221
  Receipt Date: 20111207
  Transmission Date: 20120403
  Serious: Yes (Other)
  Sender: FDA-Public Use
  Company Number: ZA-UCBSA-041277

PATIENT
  Age: 59 Year
  Sex: Female

DRUGS (5)
  1. ALENDRONATE SODIUM [Concomitant]
  2. SIMVASTATIN [Concomitant]
  3. FERROUS FORTE [Concomitant]
  4. LAMICTAL [Suspect]
     Indication: BIPOLAR I DISORDER
     Dates: start: 20080101
  5. KEPPRA [Suspect]
     Dates: start: 20080101

REACTIONS (2)
  - MUSCLE ATROPHY [None]
  - WEIGHT DECREASED [None]
